FAERS Safety Report 8621369-8 (Version None)
Quarter: 2012Q3

REPORT INFORMATION
  Report Type: 
  Country: None (occurrence: None)
  Receive Date: 20120824
  Receipt Date: 20120810
  Transmission Date: 20120928
  Serious: Yes (Other)
  Sender: FDA-Public Use
  Company Number: JP-VERTEX PHARMACEUTICAL INC.-AE-2012-010087

PATIENT
  Age: 30 Year
  Sex: Male

DRUGS (9)
  1. REBETOL [Concomitant]
     Dosage: 400 MG, QD
     Route: 048
     Dates: start: 20120529, end: 20120604
  2. REBETOL [Concomitant]
     Dosage: 200 MG, QD
     Route: 048
     Dates: start: 20120605, end: 20120703
  3. ALLOPURINOL [Concomitant]
     Indication: PRODUCT USED FOR UNKNOWN INDICATION
     Dosage: 200 MG, QD
     Dates: start: 20120807
  4. VX-950 [Suspect]
     Dosage: 1500 MG, QD
     Route: 048
     Dates: start: 20120807
  5. PEGINTRON                          /01543001/ [Concomitant]
     Dosage: 1.5 UNK, UNK
     Route: 058
     Dates: start: 20120807
  6. REBETOL [Concomitant]
     Dosage: 200 MG, QD
     Dates: start: 20120807
  7. PEGINTRON                          /01543001/ [Concomitant]
     Indication: HEPATITIS C
     Dosage: 1.5 UNK, UNK
     Route: 058
     Dates: start: 20120515, end: 20120626
  8. VX-950 [Suspect]
     Indication: HEPATITIS C
     Dosage: 1500 MG, QD
     Route: 048
     Dates: start: 20120515, end: 20120703
  9. REBETOL [Concomitant]
     Indication: HEPATITIS C
     Dosage: 600 MG, QD
     Route: 048
     Dates: start: 20120515, end: 20120528

REACTIONS (1)
  - PNEUMONIA [None]
